FAERS Safety Report 16318460 (Version 2)
Quarter: 2022Q1

REPORT INFORMATION
  Report Type: Spontaneous
  Country: GB (occurrence: GB)
  Receive Date: 20190516
  Receipt Date: 20220323
  Transmission Date: 20220424
  Serious: Yes (Death)
  Sender: FDA-Public Use
  Company Number: GB-ROCHE-597568

PATIENT
  Age: 68 Year
  Sex: Female

DRUGS (24)
  1. RITUXIMAB [Suspect]
     Active Substance: RITUXIMAB
     Indication: Diffuse large B-cell lymphoma
     Dosage: INDICATION ALSO REPORTED AS: RENAL DIFFUSE LARGE B CELL LYMPHOMA. STRENGTH: 500MG AND 2X 100MG, ON 0
     Route: 041
     Dates: start: 20071219, end: 20080518
  2. RITUXIMAB [Suspect]
     Active Substance: RITUXIMAB
     Indication: Non-Hodgkin^s lymphoma
     Dosage: UNK
     Route: 065
     Dates: start: 20080301, end: 20080301
  3. PREDNISONE [Suspect]
     Active Substance: PREDNISONE
     Indication: Non-Hodgkin^s lymphoma
     Dosage: INDICATION ALSO REPORTED AS RENAL DIFFUSE LARGE B CELL LYMPHOMA?ON 01/MAR/20008, RECEIVED THERAPY WI
     Route: 065
     Dates: start: 20071219, end: 20080518
  4. PREDNISONE [Suspect]
     Active Substance: PREDNISONE
     Indication: Diffuse large B-cell lymphoma
     Dosage: UNK
     Route: 065
     Dates: start: 20080301, end: 20080301
  5. CYCLOPHOSPHAMIDE [Suspect]
     Active Substance: CYCLOPHOSPHAMIDE
     Indication: Non-Hodgkin^s lymphoma
     Dosage: INDICATION ALSO REPORTED AS RENAL DIFFUSE LARGE B CELL LYMPHOMA?ON 01/MAR/2008, RECEIVED THERAPY WIT
     Route: 065
     Dates: start: 20071219, end: 20080518
  6. CYCLOPHOSPHAMIDE [Suspect]
     Active Substance: CYCLOPHOSPHAMIDE
     Indication: Diffuse large B-cell lymphoma
     Dosage: UNK
     Route: 065
     Dates: start: 20080301, end: 20080301
  7. VINCRISTINE SULFATE [Suspect]
     Active Substance: VINCRISTINE SULFATE
     Indication: Non-Hodgkin^s lymphoma
     Dosage: INDICATION ALSO REPORTED AS RENAL DIFFUSE LARGE B CELL LYMPHOMA?ON 01/MAR/2008, RECEIVED THERAPY WIT
     Route: 065
     Dates: start: 20071219, end: 20080518
  8. VINCRISTINE SULFATE [Suspect]
     Active Substance: VINCRISTINE SULFATE
     Indication: Diffuse large B-cell lymphoma
     Route: 065
     Dates: start: 20080301, end: 20080301
  9. DOXORUBICIN HYDROCHLORIDE [Suspect]
     Active Substance: DOXORUBICIN HYDROCHLORIDE
     Indication: Non-Hodgkin^s lymphoma
     Dosage: INDICATION ALSO REPORTED AS RENAL DIFFUSE LARGE B CELL LYMPHOMA?01/MAR/2008, RECEIVED THERAPY WITH D
     Route: 065
     Dates: start: 20071219, end: 20080518
  10. DOXORUBICIN HYDROCHLORIDE [Suspect]
     Active Substance: DOXORUBICIN HYDROCHLORIDE
     Indication: Diffuse large B-cell lymphoma
     Dosage: UNK
     Route: 065
     Dates: start: 20080301, end: 20080301
  11. METHOTREXATE SODIUM [Suspect]
     Active Substance: METHOTREXATE SODIUM
     Indication: Non-Hodgkin^s lymphoma
     Dosage: INDICATION ALSO REPORTED AS: RENAL DIFFUSE LARGE B CELL LYMPHOMA?ON 01/MAR/2008, RECEIVED THERAPY WI
     Route: 039
     Dates: start: 20080314, end: 20080518
  12. METHOTREXATE SODIUM [Suspect]
     Active Substance: METHOTREXATE SODIUM
     Dosage: UNK
     Route: 039
     Dates: end: 20080301
  13. LEUCOVORIN [Concomitant]
     Active Substance: LEUCOVORIN
  14. SIMVASTATIN [Concomitant]
     Active Substance: SIMVASTATIN
  15. LANSOPRAZOLE [Concomitant]
     Active Substance: LANSOPRAZOLE
  16. SULFAMETHOXAZOLE\TRIMETHOPRIM [Concomitant]
     Active Substance: SULFAMETHOXAZOLE\TRIMETHOPRIM
  17. FLUCONAZOLE [Concomitant]
     Active Substance: FLUCONAZOLE
  18. AMLODIPINE [Concomitant]
     Active Substance: AMLODIPINE BESYLATE
  19. AMLODIPINE [Concomitant]
     Active Substance: AMLODIPINE BESYLATE
     Dosage: UNK
  20. LEUCOVORIN CALCIUM [Concomitant]
     Active Substance: LEUCOVORIN CALCIUM
     Dosage: 15 DF, FREQ: UNK
  21. GANCICLOVIR SODIUM [Concomitant]
     Active Substance: GANCICLOVIR SODIUM
  22. SEPTINUM [Concomitant]
     Dosage: REPORTED AS M/W/F
  23. TRIMETHOPRIM [Concomitant]
     Active Substance: TRIMETHOPRIM
  24. SULFAMETHOXAZOLE [Concomitant]
     Active Substance: SULFAMETHOXAZOLE

REACTIONS (2)
  - Leukoencephalopathy [Fatal]
  - Progressive multifocal leukoencephalopathy [Fatal]

NARRATIVE: CASE EVENT DATE: 20080101
